FAERS Safety Report 8836585 (Version 1)
Quarter: 2012Q4

REPORT INFORMATION
  Report Type: Spontaneous
  Country: US (occurrence: None)
  Receive Date: 20121009
  Receipt Date: 20121009
  Transmission Date: 20130627
  Serious: Yes (Hospitalization)
  Sender: FDA-Public Use
  Company Number: INT_00128_2012

PATIENT
  Age: 59 Year
  Sex: Male

DRUGS (1)
  1. CEFEPIME [Suspect]
     Indication: SEPSIS

REACTIONS (8)
  - Aphasia [None]
  - Status epilepticus [None]
  - Aphasia [None]
  - Dysphemia [None]
  - Confusional state [None]
  - Cognitive disorder [None]
  - Incorrect dose administered [None]
  - Neurotoxicity [None]
